FAERS Safety Report 20054887 (Version 2)
Quarter: 2021Q4

REPORT INFORMATION
  Report Type: Spontaneous
  Country: US (occurrence: None)
  Receive Date: 20211110
  Receipt Date: 20211111
  Transmission Date: 20220303
  Serious: No
  Sender: FDA-Public Use
  Company Number: 2021A786026

PATIENT
  Age: 677 Month
  Sex: Female
  Weight: 70.3 kg

DRUGS (1)
  1. TAGRISSO [Suspect]
     Active Substance: OSIMERTINIB
     Indication: Lung neoplasm malignant
     Route: 048
     Dates: start: 202008

REACTIONS (8)
  - Hair texture abnormal [Unknown]
  - Muscle spasms [Unknown]
  - Asthenia [Unknown]
  - Arterial stiffness [Unknown]
  - Onychoclasis [Unknown]
  - Dry skin [Unknown]
  - Stomatitis [Unknown]
  - Diarrhoea [Unknown]

NARRATIVE: CASE EVENT DATE: 20211001
